FAERS Safety Report 5147585-8 (Version None)
Quarter: 2006Q4

REPORT INFORMATION
  Report Type: 
  Country: None (occurrence: None)
  Receive Date: 20061106
  Receipt Date: 20061024
  Transmission Date: 20070319
  Serious: Yes (Other)
  Sender: FDA-Public Use
  Company Number: 2006130321

PATIENT
  Age: 63 Year
  Sex: Female

DRUGS (1)
  1. BENADRYL [Suspect]
     Dosage: UNSPECIFIED, ORAL
     Route: 048

REACTIONS (5)
  - ARTHROPATHY [None]
  - DRY SKIN [None]
  - NASAL DRYNESS [None]
  - SINUS DISORDER [None]
  - SOMNOLENCE [None]
